FAERS Safety Report 5737233-8 (Version None)
Quarter: 2008Q2

REPORT INFORMATION
  Report Type: 
  Country: None (occurrence: None)
  Receive Date: 20080514
  Receipt Date: 20080514
  Transmission Date: 20081010
  Serious: Yes (Life-Threatening, Hospitalization)
  Sender: FDA-Public Use
  Company Number: None

PATIENT
  Age: 70 Year
  Sex: Female
  Weight: 99.7913 kg

DRUGS (1)
  1. HEPARIN [Suspect]
     Dosage: IV DRIP
     Route: 041

REACTIONS (6)
  - ABDOMINAL DISTENSION [None]
  - BLOOD DISORDER [None]
  - BLOOD PRESSURE ABNORMAL [None]
  - DYSPNOEA [None]
  - INFECTION [None]
  - RENAL FAILURE [None]
